FAERS Safety Report 6118958-1 (Version None)
Quarter: 2009Q1

REPORT INFORMATION
  Report Type: 
  Country: None (occurrence: None)
  Receive Date: 20090316
  Receipt Date: 20090310
  Transmission Date: 20090719
  Serious: Yes (Death)
  Sender: FDA-Public Use
  Company Number: US-CELGENEUS-163-21880-08110052

PATIENT
  Sex: Female

DRUGS (7)
  1. REVLIMID [Suspect]
     Indication: MYELODYSPLASTIC SYNDROME
     Route: 048
     Dates: start: 20081020, end: 20081023
  2. NAPROSYN [Concomitant]
     Indication: ARTHRITIS
     Route: 065
  3. XANAX [Concomitant]
     Indication: ANXIETY
     Route: 048
  4. FLEXERIL [Concomitant]
     Indication: ARTHRITIS
     Route: 048
  5. ALENDRONATE SODIUM [Concomitant]
     Indication: OSTEOPOROSIS
     Route: 065
  6. HYZAAR [Concomitant]
     Indication: HYPERTENSION
     Dosage: 100/25
     Route: 065
  7. LEXAPRO [Concomitant]
     Indication: DEPRESSION
     Route: 065

REACTIONS (4)
  - HEPATIC FAILURE [None]
  - MYOCARDIAL ISCHAEMIA [None]
  - RENAL FAILURE ACUTE [None]
  - RESPIRATORY FAILURE [None]
